FAERS Safety Report 5626424-2 (Version None)
Quarter: 2008Q1

REPORT INFORMATION
  Report Type: 
  Country: None (occurrence: None)
  Receive Date: 20080214
  Receipt Date: 20080204
  Transmission Date: 20080703
  Serious: Yes (Death, Hospitalization)
  Sender: FDA-Public Use
  Company Number: GB-JNJFOC-20070806400

PATIENT
  Age: 53 Year
  Sex: Male

DRUGS (11)
  1. PARACETAMOL [Suspect]
  2. PARACETAMOL [Suspect]
     Indication: ANALGESIA
  3. LEVOFLOXACIN [Suspect]
     Indication: SEPSIS
  4. AUGMENTIN '250' [Suspect]
     Indication: SEPSIS
  5. GENTAMICIN [Suspect]
     Indication: SEPSIS
  6. METRONIDAZOLE HCL [Suspect]
     Indication: SEPSIS
  7. TPN [Suspect]
     Indication: PARENTERAL NUTRITION
     Dosage: DURATION OF THERAPY 3 WEEKS
  8. VANCOMYCIN [Suspect]
     Indication: DRUG USE FOR UNKNOWN INDICATION
     Route: 065
  9. DICLOFENAC [Concomitant]
     Indication: ANALGESIA
  10. OMEPRAZOLE [Concomitant]
  11. METOCLOPRAMIDE [Concomitant]

REACTIONS (3)
  - AMINOACIDURIA [None]
  - METABOLIC ACIDOSIS [None]
  - MYOCARDIAL INFARCTION [None]
